FAERS Safety Report 16254835 (Version 1)
Quarter: 2019Q2

REPORT INFORMATION
  Report Type: Spontaneous
  Country: US (occurrence: US)
  Receive Date: 20190429
  Receipt Date: 20190429
  Transmission Date: 20190711
  Serious: Yes (Other)
  Sender: FDA-Public Use
  Company Number: None

PATIENT
  Age: 10 Year
  Sex: Female
  Weight: 43 kg

DRUGS (3)
  1. RIFAPENTINE [Suspect]
     Active Substance: RIFAPENTINE
     Indication: TUBERCULOSIS
     Dates: start: 20190310, end: 20190429
  2. RIFAMPIN WAS GIVEN IN ERROR [Concomitant]
  3. INH [Concomitant]
     Active Substance: ISONIAZID
     Dates: start: 20190310, end: 20190429

REACTIONS (3)
  - Product dispensing error [None]
  - Wrong product administered [None]
  - Product prescribing error [None]

NARRATIVE: CASE EVENT DATE: 20190429
